FAERS Safety Report 19250825 (Version 1)
Quarter: 2021Q2

REPORT INFORMATION
  Report Type: Spontaneous
  Country: US (occurrence: US)
  Receive Date: 20210513
  Receipt Date: 20210513
  Transmission Date: 20210717
  Serious: Yes (Other)
  Sender: FDA-Public Use
  Company Number: US-SNT-000057

PATIENT
  Age: 12 Year
  Sex: Female

DRUGS (2)
  1. POSACONAZOLE [Suspect]
     Active Substance: POSACONAZOLE
     Indication: PHAEOHYPHOMYCOSIS
     Dosage: 9.7 MG/KG
     Route: 048
  2. POSACONAZOLE [Suspect]
     Active Substance: POSACONAZOLE
     Indication: PHAEOHYPHOMYCOSIS
     Dosage: 12.7 MG/KG
     Route: 048

REACTIONS (10)
  - Proteinuria [Recovered/Resolved]
  - Condition aggravated [Recovered/Resolved]
  - Product use in unapproved indication [Unknown]
  - Peripheral swelling [Recovered/Resolved]
  - Oedema [Recovered/Resolved]
  - Product use issue [Unknown]
  - Periorbital oedema [Recovered/Resolved]
  - Pseudoaldosteronism [Recovered/Resolved]
  - Oedema peripheral [Recovered/Resolved]
  - Albuminuria [Recovered/Resolved]
